FAERS Safety Report 16365708 (Version 1)
Quarter: 2019Q2

REPORT INFORMATION
  Report Type: Spontaneous
  Country: FR (occurrence: FR)
  Receive Date: 20190529
  Receipt Date: 20190529
  Transmission Date: 20190711
  Serious: Yes (Hospitalization)
  Sender: FDA-Public Use
  Company Number: FR-SUN PHARMACEUTICAL INDUSTRIES LTD-2019RR-209001

PATIENT
  Age: 28 Month
  Sex: Male
  Weight: 15 kg

DRUGS (1)
  1. OLANZAPINE. [Suspect]
     Active Substance: OLANZAPINE
     Indication: ACCIDENTAL EXPOSURE TO PRODUCT BY CHILD
     Dosage: IN TOTAL
     Route: 048
     Dates: start: 20190405, end: 20190405

REACTIONS (3)
  - Accidental exposure to product by child [Recovered/Resolved]
  - Ataxia [Recovered/Resolved]
  - Somnolence [Recovered/Resolved]

NARRATIVE: CASE EVENT DATE: 20190405
